FAERS Safety Report 4771535-7 (Version None)
Quarter: 2005Q3

REPORT INFORMATION
  Report Type: 
  Country: None (occurrence: None)
  Receive Date: 20050914
  Receipt Date: 20050914
  Transmission Date: 20060218
  Serious: Yes (Other)
  Sender: FDA-Public Use
  Company Number: None

PATIENT
  Age: 16 Year
  Sex: Male

DRUGS (1)
  1. CYPROHEPTADINE HCL [Suspect]
     Indication: IMPAIRED GASTRIC EMPTYING
     Dosage: TAKE ONE TABLET TWICE DAILY

REACTIONS (3)
  - DECREASED APPETITE [None]
  - DRUG INEFFECTIVE [None]
  - SOMNOLENCE [None]
